FAERS Safety Report 4331815-6 (Version None)
Quarter: 2004Q2

REPORT INFORMATION
  Report Type: 
  Country: None (occurrence: None)
  Receive Date: 20040405
  Receipt Date: 20031001
  Transmission Date: 20050107
  Serious: No
  Sender: FDA-Public Use
  Company Number: US-GLAXOSMITHKLINE-A0428236A

PATIENT
  Sex: Female

DRUGS (3)
  1. FLOVENT [Suspect]
     Indication: ASTHMA
     Dosage: 44MCG TWICE PER DAY
     Route: 055
  2. ALBUTEROL [Concomitant]
  3. ZYRTEC [Concomitant]

REACTIONS (2)
  - NOCTURIA [None]
  - URINARY INCONTINENCE [None]
